FAERS Safety Report 21601281 (Version 2)
Quarter: 2023Q2

REPORT INFORMATION
  Report Type: Report from Study
  Country: US (occurrence: US)
  Receive Date: 20221116
  Receipt Date: 20230428
  Transmission Date: 20230722
  Serious: Yes (Life-Threatening, Hospitalization, Other)
  Sender: FDA-Public Use
  Company Number: US-EXELIXIS-XL18422057840

PATIENT
  Age: 71 Year
  Sex: Female
  Weight: 68.2 kg

DRUGS (4)
  1. PLACEBO [Suspect]
     Active Substance: UNSPECIFIED INGREDIENT
     Indication: Carcinoid tumour
     Dosage: 60 MG, QD
     Route: 048
     Dates: start: 20220804, end: 20220912
  2. CABOZANTINIB [Suspect]
     Active Substance: CABOZANTINIB
     Indication: Carcinoid tumour
     Dosage: 60 MG, QD
     Route: 048
     Dates: start: 20220804, end: 20220912
  3. PLACEBO [Suspect]
     Active Substance: UNSPECIFIED INGREDIENT
     Dosage: UNK
     Route: 048
  4. CABOZANTINIB [Suspect]
     Active Substance: CABOZANTINIB
     Dosage: UNK
     Route: 048

REACTIONS (2)
  - Supraventricular tachycardia [Recovering/Resolving]
  - Fatigue [Recovered/Resolved]

NARRATIVE: CASE EVENT DATE: 20220905
